FAERS Safety Report 16189524 (Version 2)
Quarter: 2020Q4

REPORT INFORMATION
  Report Type: Spontaneous
  Country: US (occurrence: US)
  Receive Date: 20190412
  Receipt Date: 20201228
  Transmission Date: 20210113
  Serious: No
  Sender: FDA-Public Use
  Company Number: US-PFIZER INC-2019150155

PATIENT
  Age: 70 Year
  Sex: Female
  Weight: 83.91 kg

DRUGS (4)
  1. LYRICA [Suspect]
     Active Substance: PREGABALIN
     Dosage: INCREASED TO 100 MG
     Dates: start: 2015, end: 2015
  2. LYRICA [Suspect]
     Active Substance: PREGABALIN
     Dosage: 100 MG, 3X/DAY [100MG, 3 TIMES A DAY, BY MOUTH]
     Route: 048
     Dates: start: 201510
  3. CARBAMAZEPINE. [Suspect]
     Active Substance: CARBAMAZEPINE
     Dosage: 200 MG, UNK
  4. LYRICA [Suspect]
     Active Substance: PREGABALIN
     Indication: TRIGEMINAL NEURALGIA
     Dosage: 50 MG, UNK
     Dates: start: 2015, end: 2015

REACTIONS (4)
  - Oral discomfort [Unknown]
  - Drug ineffective [Not Recovered/Not Resolved]
  - Weight increased [Unknown]
  - Discomfort [Unknown]

NARRATIVE: CASE EVENT DATE: 2015
